FAERS Safety Report 17440211 (Version 1)
Quarter: 2020Q1

REPORT INFORMATION
  Report Type: Spontaneous
  Country: CN (occurrence: CN)
  Receive Date: 20200220
  Receipt Date: 20200220
  Transmission Date: 20200409
  Serious: Yes (Other)
  Sender: FDA-Public Use
  Company Number: CN-BAXTER-2020BAX003737

PATIENT
  Age: 61 Year
  Sex: Female
  Weight: 48 kg

DRUGS (5)
  1. ENDOXAN [Suspect]
     Active Substance: CYCLOPHOSPHAMIDE
     Indication: BREAST CANCER FEMALE
     Dosage: FIRST CHEMOTHERAPY, ENDOXAN POWDER FOR INJECTION + NS 45 ML
     Route: 042
     Dates: start: 20191125, end: 20191125
  2. PHARMORUBICIN [Suspect]
     Active Substance: EPIRUBICIN
     Indication: BREAST CANCER FEMALE
     Dosage: FIRST CHEMOTHERAPY, PHARMORUBICIN POWDER FOR INJECTION + NS 100 ML
     Route: 041
     Dates: start: 20191125, end: 20191125
  3. 0.9% SODIUM CHLORIDE INJECTION [Suspect]
     Active Substance: SODIUM CHLORIDE
     Indication: MEDICATION DILUTION
     Dosage: FIRST CHEMOTHERAPY, ENDOXAN POWDER FOR INJECTION 850 MG + NS
     Route: 042
     Dates: start: 20191125, end: 20191125
  4. JINYULI [Concomitant]
     Indication: PRODUCT USED FOR UNKNOWN INDICATION
     Route: 058
     Dates: start: 20191126
  5. 0.9% SODIUM CHLORIDE INJECTION [Suspect]
     Active Substance: SODIUM CHLORIDE
     Dosage: FIRST CHEMOTHERAPY, PHARMORUBICIN POWDER FOR INJECTION 120 MG + NS
     Route: 041
     Dates: start: 20191125, end: 20191125

REACTIONS (2)
  - Agranulocytosis [Recovered/Resolved]
  - White blood cell count decreased [Recovered/Resolved]

NARRATIVE: CASE EVENT DATE: 20191202
